FAERS Safety Report 25689014 (Version 1)
Quarter: 2025Q3

REPORT INFORMATION
  Report Type: Spontaneous
  Country: CN (occurrence: CN)
  Receive Date: 20250818
  Receipt Date: 20250818
  Transmission Date: 20251020
  Serious: Yes (Hospitalization)
  Sender: ORGANON
  Company Number: CN-BAT-2025BAT000749

PATIENT
  Age: 68 Year
  Sex: Male
  Weight: 63.7 kg

DRUGS (3)
  1. TOCILIZUMAB-BAVI [Suspect]
     Active Substance: TOCILIZUMAB-BAVI
     Indication: Rheumatoid arthritis
     Dosage: 480.00 MG, ONLY ONCE
     Route: 041
     Dates: start: 20250619, end: 20250619
  2. METHOTREXATE [Concomitant]
     Active Substance: METHOTREXATE
     Indication: Rheumatoid arthritis
     Dosage: 10.00 MG, Q2W
     Route: 048
     Dates: start: 20250617, end: 20250621
  3. FOLIC ACID [Concomitant]
     Active Substance: FOLIC ACID
     Indication: Prophylaxis
     Dosage: 10.00 MG, 1 TIME PER WEEK
     Route: 048
     Dates: start: 20250618, end: 20250621

REACTIONS (6)
  - Rash maculo-papular [Recovering/Resolving]
  - Rash pruritic [Recovering/Resolving]
  - Swollen tongue [Recovering/Resolving]
  - Tongue blistering [Recovering/Resolving]
  - Flushing [Recovering/Resolving]
  - Blood pressure increased [Recovering/Resolving]

NARRATIVE: CASE EVENT DATE: 20250619
